FAERS Safety Report 10199138 (Version 1)
Quarter: 2014Q2

REPORT INFORMATION
  Report Type: Spontaneous
  Country: US (occurrence: US)
  Receive Date: 20140527
  Receipt Date: 20140527
  Transmission Date: 20141212
  Serious: No
  Sender: FDA-Public Use
  Company Number: US-NOVEN-13US008356

PATIENT
  Age: 5 Year
  Sex: Male

DRUGS (2)
  1. DAYTRANA [Suspect]
     Indication: IMPULSIVE BEHAVIOUR
     Dosage: 10 MG, QD
     Route: 062
     Dates: start: 201311
  2. DAYTRANA [Suspect]
     Indication: PSYCHOMOTOR HYPERACTIVITY

REACTIONS (8)
  - Dry mouth [Not Recovered/Not Resolved]
  - Affect lability [Not Recovered/Not Resolved]
  - Mydriasis [Not Recovered/Not Resolved]
  - Crying [Not Recovered/Not Resolved]
  - Decreased appetite [Not Recovered/Not Resolved]
  - Application site irritation [Not Recovered/Not Resolved]
  - Application site erythema [Not Recovered/Not Resolved]
  - Off label use [Unknown]
